FAERS Safety Report 17036857 (Version 2)
Quarter: 2019Q4

REPORT INFORMATION
  Report Type: Spontaneous
  Country: HU (occurrence: HU)
  Receive Date: 20191115
  Receipt Date: 20191210
  Transmission Date: 20200122
  Serious: Yes (Death, Hospitalization, Other)
  Sender: FDA-Public Use
  Company Number: NVSC2019HU036570

PATIENT
  Age: 65 Year
  Weight: 92 kg

DRUGS (20)
  1. MOXIFLOXACIN. [Suspect]
     Active Substance: MOXIFLOXACIN
     Indication: PRODUCT USED FOR UNKNOWN INDICATION
     Dosage: UNK UNK, UNKNOWN
     Route: 051
     Dates: start: 2019
  2. CEFAZOLIN [Suspect]
     Active Substance: CEFAZOLIN
     Indication: PRODUCT USED FOR UNKNOWN INDICATION
     Dosage: UNK UNK, UNKNOWN
     Route: 051
     Dates: start: 20191010
  3. LIDOCAINE. [Suspect]
     Active Substance: LIDOCAINE
     Indication: PROPHYLAXIS
     Dosage: UNK UNK, UNKNOWN
     Route: 065
     Dates: start: 20191029
  4. DULCOLAX NOS [Concomitant]
     Active Substance: BISACODYL OR DOCUSATE SODIUM
     Indication: PRODUCT USED FOR UNKNOWN INDICATION
     Dosage: UNK UNK, UNKNOWN
     Route: 065
  5. ALGOPYRIN [Concomitant]
     Active Substance: METAMIZOLE SODIUM
     Indication: PRODUCT USED FOR UNKNOWN INDICATION
     Dosage: UNK UNK, UNKNOWN
     Route: 042
  6. BETALOC ZOK [Concomitant]
     Active Substance: METOPROLOL SUCCINATE
     Indication: PRODUCT USED FOR UNKNOWN INDICATION
     Dosage: 50 MG, BID
     Route: 065
  7. CORDARONE [Concomitant]
     Active Substance: AMIODARONE HYDROCHLORIDE
     Indication: PRODUCT USED FOR UNKNOWN INDICATION
     Dosage: 200 MG, QD (IN THE EVENING)
     Route: 065
  8. ENTRESTO [Suspect]
     Active Substance: SACUBITRIL\VALSARTAN
     Indication: CARDIAC FAILURE
     Dosage: 200 MG, OT (97/103) (1 IN THE MORNING, ? IN THE EVENING)
     Route: 065
  9. NITRODERM [Suspect]
     Active Substance: NITROGLYCERIN
     Indication: PRODUCT USED FOR UNKNOWN INDICATION
     Dosage: UNK UNK, UNKNOWN
     Route: 065
  10. ULPRIX [Concomitant]
     Active Substance: PANTOPRAZOLE SODIUM
     Indication: PRODUCT USED FOR UNKNOWN INDICATION
     Dosage: 40 MG, QD
     Route: 065
  11. SYNCUMAR [Concomitant]
     Active Substance: ACENOCOUMAROL
     Indication: PRODUCT USED FOR UNKNOWN INDICATION
     Dosage: 1 MG, UNKNOWN
     Route: 065
  12. ALVOLEX [Concomitant]
     Indication: PNEUMONIA
     Dosage: UNK UNK, UNKNOWN
     Route: 065
  13. KONAKION [Concomitant]
     Active Substance: PHYTONADIONE
     Indication: PRODUCT USED FOR UNKNOWN INDICATION
     Dosage: UNK UNK, UNKNOWN
     Route: 065
     Dates: start: 20191117
  14. FUROSEMIDE. [Concomitant]
     Active Substance: FUROSEMIDE
     Indication: PRODUCT USED FOR UNKNOWN INDICATION
     Dosage: 40 MG, QD (IN THE MORNING)
     Route: 065
  15. SODIUM HEPARIN [Concomitant]
     Active Substance: HEPARIN SODIUM
     Indication: PRODUCT USED FOR UNKNOWN INDICATION
     Dosage: 5000 IU, ONCE/SINGLE
     Route: 013
     Dates: start: 20141216, end: 20141216
  16. AMIODARONE [Suspect]
     Active Substance: AMIODARONE
     Indication: PRODUCT USED FOR UNKNOWN INDICATION
     Dosage: UNK UNK, UNKNOWN
     Route: 065
     Dates: start: 201011
  17. MEZYM FORTE [Concomitant]
     Active Substance: PANCRELIPASE
     Indication: PRODUCT USED FOR UNKNOWN INDICATION
     Dosage: UNK UNK, UNKNOWN
     Route: 065
  18. SPIRON [Concomitant]
     Indication: PRODUCT USED FOR UNKNOWN INDICATION
     Dosage: 50 MG, QD (IN THE EVENING)
     Route: 065
  19. CARVEDILOL. [Suspect]
     Active Substance: CARVEDILOL
     Indication: PRODUCT USED FOR UNKNOWN INDICATION
     Dosage: UUNK UNK, UNKNOWN
     Route: 065
  20. L-THYROXINE [Concomitant]
     Active Substance: LEVOTHYROXINE
     Indication: HYPOTHYROIDISM
     Dosage: UNK UNK, UNKNOWN
     Route: 065
     Dates: start: 20191010

REACTIONS (57)
  - Joint injury [Unknown]
  - Bundle branch block right [Unknown]
  - Angina pectoris [Unknown]
  - Pulmonary hypertension [Unknown]
  - Dyspnoea [Unknown]
  - Hypotension [Unknown]
  - Decubitus ulcer [Unknown]
  - Dilatation atrial [Unknown]
  - Left ventricular dysfunction [Unknown]
  - Cough [Unknown]
  - Ventricular extrasystoles [Unknown]
  - Abdominal distension [Recovering/Resolving]
  - Normochromic anaemia [Unknown]
  - Somnolence [Unknown]
  - Exercise tolerance decreased [Unknown]
  - Cardiac failure [Fatal]
  - Sinus bradycardia [Unknown]
  - N-terminal prohormone brain natriuretic peptide increased [Unknown]
  - Erysipelas [Unknown]
  - Mucous stools [Recovering/Resolving]
  - Diarrhoea [Unknown]
  - Congestive cardiomyopathy [Unknown]
  - Atrial fibrillation [Unknown]
  - Tricuspid valve incompetence [Unknown]
  - Cardiovascular insufficiency [Unknown]
  - Renal impairment [Unknown]
  - Essential hypertension [Unknown]
  - Gastrointestinal motility disorder [Unknown]
  - Fatigue [Unknown]
  - Normocytic anaemia [Unknown]
  - Sinus node dysfunction [Unknown]
  - Respiratory failure [Unknown]
  - Multiple organ dysfunction syndrome [Unknown]
  - Hypokinesia [Unknown]
  - Thyroid mass [Unknown]
  - Body temperature [Unknown]
  - Mitral valve incompetence [Unknown]
  - Weight decreased [Unknown]
  - Ventricular tachycardia [Unknown]
  - Ventricular remodelling [Unknown]
  - Pulmonary congestion [Unknown]
  - Anuria [Not Recovered/Not Resolved]
  - Atrial flutter [Unknown]
  - Cardiomegaly [Unknown]
  - Diverticulum intestinal [Unknown]
  - C-reactive protein increased [Recovering/Resolving]
  - Glomerular filtration rate [Unknown]
  - Fall [Unknown]
  - Shock [Unknown]
  - Hypothyroidism [Unknown]
  - Ischaemic contracture of the left ventricle [Unknown]
  - Pneumonia [Unknown]
  - Bundle branch block left [Unknown]
  - Extrasystoles [Unknown]
  - Oedema peripheral [Recovering/Resolving]
  - Asthenia [Not Recovered/Not Resolved]
  - Diaphragmatic disorder [Unknown]

NARRATIVE: CASE EVENT DATE: 201006
